FAERS Safety Report 15818801 (Version 4)
Quarter: 2019Q2

REPORT INFORMATION
  Report Type: Report from Study
  Country: US (occurrence: US)
  Receive Date: 20190113
  Receipt Date: 20190524
  Transmission Date: 20190711
  Serious: No
  Sender: FDA-Public Use
  Company Number: US-ALEXION PHARMACEUTICALS INC.-A201900383

PATIENT
  Sex: Female

DRUGS (2)
  1. XARELTO [Concomitant]
     Active Substance: RIVAROXABAN
     Indication: PRODUCT USED FOR UNKNOWN INDICATION
     Route: 065
  2. SOLIRIS [Suspect]
     Active Substance: ECULIZUMAB
     Indication: PAROXYSMAL NOCTURNAL HAEMOGLOBINURIA
     Route: 065

REACTIONS (14)
  - Head injury [Unknown]
  - Blood lactate dehydrogenase increased [Unknown]
  - Stress [Unknown]
  - Faeces soft [Unknown]
  - Granulocytes abnormal [Unknown]
  - Balance disorder [Unknown]
  - Joint injury [Unknown]
  - Fatigue [Unknown]
  - Flatulence [Unknown]
  - Cognitive disorder [Unknown]
  - Drug ineffective [Unknown]
  - Abdominal pain [Recovered/Resolved]
  - Piloerection [Unknown]
  - Haemoglobin decreased [Unknown]
